FAERS Safety Report 4554499-0 (Version None)
Quarter: 2005Q1

REPORT INFORMATION
  Report Type: 
  Country: None (occurrence: None)
  Receive Date: 20050118
  Receipt Date: 20050110
  Transmission Date: 20050727
  Serious: Yes (Hospitalization)
  Sender: FDA-Public Use
  Company Number: GB-ROCHE-391891

PATIENT
  Age: 18 Year
  Sex: Female
  Weight: 27.2 kg

DRUGS (3)
  1. KETOROLAC TROMETHAMINE [Suspect]
     Indication: DRUG USE FOR UNKNOWN INDICATION
     Route: 030
     Dates: start: 20041127
  2. PROPOFOL [Suspect]
     Indication: GENERAL ANAESTHESIA
     Route: 042
     Dates: start: 20041127, end: 20041127
  3. FENTANYL [Suspect]
     Indication: GENERAL ANAESTHESIA
     Route: 042
     Dates: start: 20041127, end: 20041127

REACTIONS (3)
  - DYSTONIA [None]
  - PANIC ATTACK [None]
  - POST PROCEDURAL COMPLICATION [None]
